FAERS Safety Report 7296300-0 (Version None)
Quarter: 2011Q1

REPORT INFORMATION
  Report Type: 
  Country: None (occurrence: None)
  Receive Date: 20110216
  Receipt Date: 20110208
  Transmission Date: 20110831
  Serious: Yes (Other)
  Sender: FDA-Public Use
  Company Number: US-AMGEN-USASP2011007572

PATIENT
  Age: 62 Year
  Sex: Female

DRUGS (1)
  1. ENBREL [Suspect]
     Indication: RHEUMATOID ARTHRITIS
     Dosage: 50 MG, QWK
     Dates: start: 19990101

REACTIONS (9)
  - PNEUMONIA [None]
  - INJECTION SITE NODULE [None]
  - INJECTION SITE HAEMATOMA [None]
  - MALAISE [None]
  - FATIGUE [None]
  - FEELING COLD [None]
  - RHEUMATOID ARTHRITIS [None]
  - DEPRESSION [None]
  - INJECTION SITE PAIN [None]
